FAERS Safety Report 8070837-9 (Version None)
Quarter: 2012Q1

REPORT INFORMATION
  Report Type: 
  Country: None (occurrence: None)
  Receive Date: 20120125
  Receipt Date: 20120124
  Transmission Date: 20120608
  Serious: Yes (Hospitalization)
  Sender: FDA-Public Use
  Company Number: FR-GLAXOSMITHKLINE-B0762297A

PATIENT
  Sex: Female

DRUGS (8)
  1. LOVENOX [Suspect]
     Indication: PRODUCT USED FOR UNKNOWN INDICATION
     Dosage: .4ML TWICE PER DAY
     Route: 058
     Dates: start: 20110801
  2. IMOVANE [Concomitant]
     Dosage: 3.75MG AS REQUIRED
     Route: 048
  3. NEXIUM [Concomitant]
     Dosage: 40MG PER DAY
     Route: 048
  4. DEROXAT [Suspect]
     Indication: PRODUCT USED FOR UNKNOWN INDICATION
     Dosage: 20MG PER DAY
     Route: 048
     Dates: start: 20110801
  5. ACETAMINOPHEN [Concomitant]
     Dosage: 1G AS REQUIRED
     Route: 048
  6. DIGOXIN [Concomitant]
     Dosage: .125MG PER DAY
     Route: 048
  7. LASIX [Concomitant]
     Dosage: 20MG PER DAY
     Route: 048
  8. PREVISCAN [Suspect]
     Indication: PRODUCT USED FOR UNKNOWN INDICATION
     Dosage: 10MG PER DAY
     Route: 048
     Dates: start: 20110820

REACTIONS (6)
  - DRUG INTERACTION [None]
  - PAIN [None]
  - HAEMATOMA [None]
  - MYALGIA [None]
  - OEDEMA PERIPHERAL [None]
  - WALKING DISABILITY [None]
